FAERS Safety Report 10607938 (Version 1)
Quarter: 2014Q4

REPORT INFORMATION
  Report Type: Spontaneous
  Country: US (occurrence: US)
  Receive Date: 20141125
  Receipt Date: 20141125
  Transmission Date: 20150529
  Serious: No
  Sender: FDA-Public Use
  Company Number: US-BRISTOL-MYERS SQUIBB COMPANY-21376918

PATIENT
  Age: 59 Year
  Sex: Male
  Weight: 72.11 kg

DRUGS (1)
  1. FARXIGA [Suspect]
     Active Substance: DAPAGLIFLOZIN PROPANEDIOL
     Indication: DIABETES MELLITUS
     Dates: end: 20140905

REACTIONS (2)
  - Fungal infection [Unknown]
  - Balance disorder [Recovered/Resolved]
